FAERS Safety Report 9838743 (Version 2)
Quarter: 2014Q1

REPORT INFORMATION
  Report Type: Spontaneous
  Country: GR (occurrence: GR)
  Receive Date: 20140123
  Receipt Date: 20140211
  Transmission Date: 20141002
  Serious: Yes (Other)
  Sender: FDA-Public Use
  Company Number: GR-TEVA-457908ISR

PATIENT
  Age: 3 Year
  Sex: Female

DRUGS (10)
  1. LEVETIRACETAM/TEVA [Suspect]
  2. OXCARBAZEPINE/TEVA [Suspect]
  3. TOPIRAMATE/TEVA [Suspect]
  4. SODIUM VALPROATE [Suspect]
  5. PHENYTOIN [Suspect]
  6. PHENOBARBITAL [Suspect]
  7. MIDAZOLAM [Suspect]
  8. LACOSAMIDE [Suspect]
  9. PREDNISOLONE [Suspect]
  10. GAMMA GLOBULIN [Suspect]

REACTIONS (2)
  - Epilepsy [Unknown]
  - Rasmussen encephalitis [Unknown]
